FAERS Safety Report 4342548-4 (Version None)
Quarter: 2004Q2

REPORT INFORMATION
  Report Type: 
  Country: None (occurrence: None)
  Receive Date: 20040416
  Receipt Date: 20040407
  Transmission Date: 20050107
  Serious: Yes (Hospitalization, Other)
  Sender: FDA-Public Use
  Company Number: 2003179208SE

PATIENT
  Age: 45 Year
  Sex: Female

DRUGS (2)
  1. CYKLOKAPRON [Suspect]
     Indication: RHABDOMYOMA
     Dosage: 300-400 PRN, ORAL
     Route: 048
     Dates: start: 19970318, end: 19970728
  2. PROGESTEOGENS AND ESTROGENS IN COMBINATION [Suspect]
     Indication: RHABDOMYOMA
     Dosage: 1 TABLET, ORAL
     Route: 048
     Dates: start: 19970522, end: 19970728

REACTIONS (4)
  - APHASIA [None]
  - APRAXIA [None]
  - CEREBRAL INFARCTION [None]
  - HEMIPARESIS [None]
